FAERS Safety Report 4939710-6 (Version None)
Quarter: 2006Q1

REPORT INFORMATION
  Report Type: 
  Country: None (occurrence: None)
  Receive Date: 20060310
  Receipt Date: 20060228
  Transmission Date: 20060701
  Serious: Yes (Hospitalization)
  Sender: FDA-Public Use
  Company Number: US-MERCK-0603USA00271

PATIENT
  Age: 39 Year
  Sex: Female
  Weight: 89 kg

DRUGS (6)
  1. VIOXX [Suspect]
     Indication: OSTEOARTHRITIS
     Route: 048
     Dates: start: 20010301, end: 20021126
  2. VIOXX [Suspect]
     Indication: BACK INJURY
     Route: 048
     Dates: start: 20010301, end: 20021126
  3. VIOXX [Suspect]
     Route: 048
     Dates: start: 20010301, end: 20021126
  4. TYLENOL (CAPLET) [Concomitant]
     Route: 065
  5. IBUPROFEN [Concomitant]
     Route: 065
  6. VIOXX [Suspect]
     Route: 048
     Dates: start: 20010301, end: 20021126

REACTIONS (11)
  - ASTHENIA [None]
  - C-REACTIVE PROTEIN INCREASED [None]
  - CHEST PAIN [None]
  - DIZZINESS [None]
  - HYPERTENSION [None]
  - ISCHAEMIA [None]
  - LIPOPROTEIN (A) INCREASED [None]
  - MUSCLE SPASMS [None]
  - PALPITATIONS [None]
  - VASCULAR INSUFFICIENCY [None]
  - VENTRICULAR HYPOKINESIA [None]
